FAERS Safety Report 4605908-X (Version None)
Quarter: 2005Q2

REPORT INFORMATION
  Report Type: 
  Country: None (occurrence: None)
  Receive Date: 20050303
  Receipt Date: 20041116
  Transmission Date: 20051028
  Serious: No
  Sender: FDA-Public Use
  Company Number: 200421030BWH

PATIENT
  Age: 73 Year
  Sex: Male
  Weight: 79.3795 kg

DRUGS (12)
  1. LEVITRA [Suspect]
     Indication: ERECTILE DYSFUNCTION
     Dosage: 10 MG, ONCE, ORAL
     Route: 048
     Dates: start: 20041001
  2. CARDURA [Concomitant]
  3. FLOMAX [Concomitant]
  4. HUMALOG [Concomitant]
  5. DIAZEPAM [Concomitant]
  6. ZOLOFT [Concomitant]
  7. PROSCAR [Concomitant]
  8. PRILOSEC [Concomitant]
  9. TRAZODONE [Concomitant]
  10. DELATESTRYL [Concomitant]
  11. ALLERGY SHOTS [Concomitant]
  12. MULTI-VITAMIN [Concomitant]

REACTIONS (1)
  - HYPOTENSION [None]
